FAERS Safety Report 9493226 (Version 1)
Quarter: 2013Q3

REPORT INFORMATION
  Report Type: Spontaneous
  Country: AU (occurrence: AU)
  Receive Date: 20130902
  Receipt Date: 20130902
  Transmission Date: 20140515
  Serious: Yes (Other)
  Sender: FDA-Public Use
  Company Number: PHHY2013AU093855

PATIENT
  Sex: Female

DRUGS (1)
  1. GILENYA [Suspect]
     Dosage: UNK
     Route: 048
     Dates: start: 20130422

REACTIONS (4)
  - Syncope [Unknown]
  - Heart rate decreased [Unknown]
  - Sensory disturbance [Unknown]
  - Feeling cold [Unknown]
